FAERS Safety Report 13849377 (Version 1)
Quarter: 2017Q3

REPORT INFORMATION
  Report Type: Spontaneous
  Country: US (occurrence: US)
  Receive Date: 20170809
  Receipt Date: 20170809
  Transmission Date: 20171127
  Serious: No
  Sender: FDA-Public Use
  Company Number: US-LUPIN PHARMACEUTICALS INC.-2016-05183

PATIENT
  Age: 83 Year
  Sex: Male

DRUGS (2)
  1. LEVETIRACETAM. [Suspect]
     Active Substance: LEVETIRACETAM
     Dosage: 250 MG AT ONE TIME AND 125 MG IN THE EVENING
     Route: 065
  2. LEVETIRACETAM. [Suspect]
     Active Substance: LEVETIRACETAM
     Indication: ORTHOSTATIC TREMOR
     Dosage: 250 MG,BID,
     Route: 065

REACTIONS (2)
  - Sedation [Unknown]
  - Dizziness [Unknown]
